FAERS Safety Report 15756276 (Version 2)
Quarter: 2019Q1

REPORT INFORMATION
  Report Type: Spontaneous
  Country: US (occurrence: US)
  Receive Date: 20181224
  Receipt Date: 20190129
  Transmission Date: 20190417
  Serious: Yes (Other)
  Sender: FDA-Public Use
  Company Number: US-COLGATE PALMOLIVE COMPANY-20181203022

PATIENT
  Sex: Female
  Weight: 75.74 kg

DRUGS (3)
  1. COLGATE MAX FRESH COOL MINT [Suspect]
     Active Substance: SODIUM FLUORIDE
     Dosage: UNK, BID
     Dates: start: 2016, end: 2016
  2. COLGATE MAX FRESH COOL MINT [Suspect]
     Active Substance: SODIUM FLUORIDE
     Dosage: UNK, BID
     Dates: start: 201809
  3. COLGATE 2IN1 ICY BLAST [Suspect]
     Active Substance: SODIUM FLUORIDE
     Dosage: UNK, BID
     Dates: start: 201810, end: 2018

REACTIONS (6)
  - Skin discolouration [Unknown]
  - Pruritus [Unknown]
  - Breast discolouration [Unknown]
  - Breast mass [Unknown]
  - Breast cancer [Not Recovered/Not Resolved]
  - Varicose vein [Unknown]

NARRATIVE: CASE EVENT DATE: 2016
